FAERS Safety Report 9301615 (Version 1)
Quarter: 2013Q2

REPORT INFORMATION
  Report Type: Report from Study
  Country: US (occurrence: US)
  Receive Date: 20130521
  Receipt Date: 20130521
  Transmission Date: 20140414
  Serious: Yes (Other)
  Sender: FDA-Public Use
  Company Number: US-ABBOTT-13P-163-1090855-00

PATIENT
  Age: 56 Year
  Sex: Female
  Weight: 95.34 kg

DRUGS (1)
  1. HUMIRA [Suspect]
     Indication: RHEUMATOID ARTHRITIS
     Dates: start: 2011

REACTIONS (5)
  - Vision blurred [Recovering/Resolving]
  - Diplopia [Recovering/Resolving]
  - Ophthalmic herpes zoster [Recovering/Resolving]
  - Headache [Recovered/Resolved]
  - Eye pain [Recovering/Resolving]
